FAERS Safety Report 5117568-2 (Version None)
Quarter: 2006Q3

REPORT INFORMATION
  Report Type: 
  Country: None (occurrence: None)
  Receive Date: 20060929
  Receipt Date: 20060925
  Transmission Date: 20061208
  Serious: Yes (Death)
  Sender: FDA-Public Use
  Company Number: AU-AVENTIS-200614929EU

PATIENT
  Sex: Female

DRUGS (1)
  1. CLEXANE [Suspect]

REACTIONS (1)
  - DEATH [None]
